APPROVED DRUG PRODUCT: CEFOTAXIME
Active Ingredient: CEFOTAXIME SODIUM
Strength: EQ 10GM BASE/VIAL
Dosage Form/Route: INJECTABLE;INJECTION
Application: A065071 | Product #001
Applicant: HIKMA FARMACEUTICA LDA
Approved: Nov 20, 2002 | RLD: No | RS: No | Type: DISCN